FAERS Safety Report 6270742-4 (Version None)
Quarter: 2009Q3

REPORT INFORMATION
  Report Type: 
  Country: None (occurrence: None)
  Receive Date: 20090716
  Receipt Date: 20090704
  Transmission Date: 20100115
  Serious: Yes (Hospitalization, Other)
  Sender: FDA-Public Use
  Company Number: IT-PFIZER INC-2009237160

PATIENT
  Age: 71 Year

DRUGS (6)
  1. SERTRALINE HCL [Suspect]
     Indication: DEPRESSION
     Dosage: 50 MG A DAY
     Dates: start: 20070901, end: 20080201
  2. AMISULPRIDE [Concomitant]
     Dosage: 50 MG A DAY
  3. NICERGOLINE [Concomitant]
     Dosage: 30 MG/DAY
  4. AMLODIPINE [Concomitant]
     Dosage: 5 MG A DAY
  5. CANDESARTAN [Concomitant]
     Dosage: 16 MG A DAY
  6. ATENOLOL [Concomitant]
     Dosage: 25 MG A DAY

REACTIONS (1)
  - RHABDOMYOLYSIS [None]
